FAERS Safety Report 7093786-1 (Version None)
Quarter: 2010Q4

REPORT INFORMATION
  Report Type: 
  Country: None (occurrence: None)
  Receive Date: 20101110
  Receipt Date: 20101029
  Transmission Date: 20110411
  Serious: Yes (Other)
  Sender: FDA-Public Use
  Company Number: CH-BAYER-201043989GPV

PATIENT
  Age: 41 Year
  Sex: Female
  Weight: 57 kg

DRUGS (1)
  1. MIRENA [Suspect]
     Indication: CONTRACEPTION
     Route: 015
     Dates: start: 20100817, end: 20101007

REACTIONS (6)
  - ANXIETY [None]
  - FEAR [None]
  - NERVOUSNESS [None]
  - PALPITATIONS [None]
  - SUICIDAL IDEATION [None]
  - VAGINAL HAEMORRHAGE [None]
